FAERS Safety Report 6327222-7 (Version None)
Quarter: 2009Q3

REPORT INFORMATION
  Report Type: 
  Country: None (occurrence: None)
  Receive Date: 20090825
  Receipt Date: 20090814
  Transmission Date: 20100115
  Serious: Yes (Hospitalization, Disabling, Other)
  Sender: FDA-Public Use
  Company Number: AM-ELI_LILLY_AND_COMPANY-AM200902002988

PATIENT
  Sex: Female

DRUGS (9)
  1. FORTEO [Suspect]
     Indication: OSTEOPOROSIS
     Dosage: 20 UG, DAILY (1/D)
     Route: 058
     Dates: start: 20070927, end: 20071010
  2. CALCEMIN [Concomitant]
     Dosage: UNK, UNKNOWN
     Route: 065
  3. NICOMIDE [Concomitant]
     Dosage: UNK, UNKNOWN
     Route: 065
  4. ROCALTROL [Concomitant]
     Dosage: UNK, UNKNOWN
     Route: 065
  5. BONIVA [Concomitant]
     Dosage: UNK, UNKNOWN
     Route: 065
  6. STRONTIUM RANELATE [Concomitant]
     Dosage: UNK, UNKNOWN
     Route: 065
  7. OSTEOGENON [Concomitant]
     Dosage: UNK, UNKNOWN
     Route: 065
  8. LORNOXICAM [Concomitant]
     Dosage: UNK, UNKNOWN
     Route: 065
  9. CALCITONIN [Concomitant]
     Dosage: UNK, UNKNOWN
     Route: 065

REACTIONS (6)
  - DISABILITY [None]
  - FEMUR FRACTURE [None]
  - GENERAL PHYSICAL HEALTH DETERIORATION [None]
  - MULTIPLE MYELOMA [None]
  - PNEUMONIA [None]
  - RENAL CYST [None]
